FAERS Safety Report 5225685-1 (Version None)
Quarter: 2007Q1

REPORT INFORMATION
  Report Type: 
  Country: None (occurrence: None)
  Receive Date: 20061201
  Receipt Date: 20060801
  Transmission Date: 20070707
  Serious: No
  Sender: FDA-Public Use
  Company Number: US200607002935

PATIENT
  Age: 54 Year
  Sex: Male

DRUGS (4)
  1. CYMBALTA [Suspect]
     Dosage: 60 MG
     Dates: start: 20050201, end: 20060124
  2. ZOCOR [Concomitant]
  3. NAPROSYN /NOR/ (NAPROXEN) [Concomitant]
  4. METHADONE HYDROCHLORIDE (METHADONE HYDROCHLORIDE UNKNOWN FORMULATION) [Concomitant]

REACTIONS (2)
  - BLOOD PRESSURE INCREASED [None]
  - HEADACHE [None]
